FAERS Safety Report 9184893 (Version 1)
Quarter: 2013Q1

REPORT INFORMATION
  Report Type: Spontaneous
  Country: US (occurrence: US)
  Receive Date: 20130325
  Receipt Date: 20130325
  Transmission Date: 20140127
  Serious: Yes (Other)
  Sender: FDA-Public Use
  Company Number: US-BRISTOL-MYERS SQUIBB COMPANY-16521288

PATIENT
  Sex: Male

DRUGS (2)
  1. ERBITUX [Suspect]
     Indication: COLON CANCER METASTATIC
  2. IRINOTECAN [Suspect]
     Indication: COLON CANCER METASTATIC

REACTIONS (3)
  - Renal failure [Unknown]
  - White blood cell count decreased [Unknown]
  - Blood magnesium decreased [Unknown]
